FAERS Safety Report 9116077 (Version 1)
Quarter: 2013Q1

REPORT INFORMATION
  Report Type: Spontaneous
  Country: US (occurrence: US)
  Receive Date: 20130225
  Receipt Date: 20130225
  Transmission Date: 20140127
  Serious: No
  Sender: FDA-Public Use
  Company Number: US-ENDO PHARMACEUTICALS INC.-FORT20120247

PATIENT
  Sex: Male
  Weight: 96.25 kg

DRUGS (6)
  1. FORTESTA [Suspect]
     Indication: FATIGUE
     Route: 061
     Dates: start: 201210
  2. LISINOPRIL [Concomitant]
     Indication: HYPERTENSION
     Dosage: UNK
     Route: 048
  3. LIPITOR [Concomitant]
     Indication: BLOOD CHOLESTEROL INCREASED
     Dosage: UNK
     Route: 048
  4. METFORMIN [Concomitant]
     Indication: DIABETES MELLITUS
     Dosage: UNK
     Route: 048
  5. BYDUREON [Concomitant]
     Indication: DIABETES MELLITUS
     Dosage: UNK
  6. ASPIRIN [Concomitant]
     Indication: CARDIOVASCULAR EVENT PROPHYLAXIS
     Route: 048

REACTIONS (2)
  - Weight increased [Not Recovered/Not Resolved]
  - Drug effect delayed [Recovered/Resolved]
